FAERS Safety Report 10579987 (Version 1)
Quarter: 2014Q4

REPORT INFORMATION
  Report Type: Report from Study
  Country: SE (occurrence: SE)
  Receive Date: 20141112
  Receipt Date: 20141112
  Transmission Date: 20150529
  Serious: Yes (Hospitalization, Other)
  Sender: FDA-Public Use
  Company Number: PHHY2014SE146070

PATIENT
  Age: 78 Year
  Sex: Female
  Weight: 62.8 kg

DRUGS (1)
  1. SOMATROPIN [Suspect]
     Active Substance: SOMATROPIN
     Indication: GROWTH HORMONE DEFICIENCY
     Dosage: 0.2 MG, QD
     Route: 058
     Dates: start: 20130307

REACTIONS (4)
  - Tachycardia [Recovered/Resolved]
  - Concomitant disease progression [Unknown]
  - Cardiac failure [Unknown]
  - Bronchitis [Unknown]

NARRATIVE: CASE EVENT DATE: 20131229
